FAERS Safety Report 8308289-3 (Version None)
Quarter: 2012Q2

REPORT INFORMATION
  Report Type: 
  Country: None (occurrence: None)
  Receive Date: 20120424
  Receipt Date: 20120418
  Transmission Date: 20120825
  Serious: Yes (Other)
  Sender: FDA-Public Use
  Company Number: US-PFIZER INC-2012097275

PATIENT
  Sex: Female

DRUGS (1)
  1. NEURONTIN [Suspect]
     Dosage: 300 MG, 3X/DAY
     Route: 048

REACTIONS (3)
  - CONVULSION [None]
  - IMPAIRED WORK ABILITY [None]
  - MENTAL DISORDER [None]
